FAERS Safety Report 21692592 (Version 1)
Quarter: 2022Q4

REPORT INFORMATION
  Report Type: Report from Study
  Country: US (occurrence: US)
  Receive Date: 20221207
  Receipt Date: 20221207
  Transmission Date: 20230113
  Serious: No
  Sender: FDA-Public Use
  Company Number: US-ESPERIONTHERAPEUTICS-2022USA01768

PATIENT
  Age: 61 Year
  Sex: Female

DRUGS (1)
  1. BEMPEDOIC ACID\EZETIMIBE [Suspect]
     Active Substance: BEMPEDOIC ACID\EZETIMIBE
     Indication: Product used for unknown indication
     Dosage: 180 MG/10 MG, QD
     Route: 048
     Dates: start: 20210821

REACTIONS (3)
  - COVID-19 [Unknown]
  - Rash papular [Unknown]
  - Constipation [Unknown]

NARRATIVE: CASE EVENT DATE: 20220701
